FAERS Safety Report 5921481-8 (Version None)
Quarter: 2008Q4

REPORT INFORMATION
  Report Type: 
  Country: None (occurrence: None)
  Receive Date: 20081016
  Receipt Date: 20081016
  Transmission Date: 20090506
  Serious: Yes (Disabling, Other)
  Sender: FDA-Public Use
  Company Number: None

PATIENT
  Age: 48 Year
  Sex: Female
  Weight: 61.2356 kg

DRUGS (1)
  1. PROLIXIN DECANOATE [Suspect]
     Dates: start: 20070301, end: 20070601

REACTIONS (2)
  - TOOTH LOSS [None]
  - TREMOR [None]
